FAERS Safety Report 6901828-6 (Version None)
Quarter: 2010Q3

REPORT INFORMATION
  Report Type: 
  Country: None (occurrence: None)
  Receive Date: 20100803
  Receipt Date: 20080314
  Transmission Date: 20110219
  Serious: No
  Sender: FDA-Public Use
  Company Number: US-PFIZER INC-2008024720

PATIENT
  Sex: Female
  Weight: 102.27 kg

DRUGS (18)
  1. LYRICA [Suspect]
     Indication: DIABETIC NEUROPATHY
     Dates: start: 20071207
  2. TRIOBE [Concomitant]
  3. BENTYL [Concomitant]
  4. ZOLOFT [Concomitant]
  5. MONTELUKAST [Concomitant]
  6. FLOVENT [Concomitant]
  7. MAXALT [Concomitant]
  8. WELLBUTRIN [Concomitant]
  9. AMITRIPTYLINE HYDROCHLORIDE [Concomitant]
  10. VITAMIN TAB [Concomitant]
  11. GLYBURIDE [Concomitant]
  12. METFORMIN HCL [Concomitant]
  13. FOLIC ACID [Concomitant]
  14. POTASSIUM [Concomitant]
  15. ZOCOR [Concomitant]
  16. LASIX [Concomitant]
  17. ZESTORETIC [Concomitant]
  18. ALBUTEROL [Concomitant]

REACTIONS (2)
  - BLOOD TRIGLYCERIDES INCREASED [None]
  - GLYCOSYLATED HAEMOGLOBIN INCREASED [None]
